FAERS Safety Report 8877524 (Version 1)
Quarter: 2012Q4

REPORT INFORMATION
  Report Type: 
  Country: US (occurrence: US)
  Receive Date: 20121024
  Receipt Date: 20121024
  Transmission Date: 20130627
  Serious: Yes (Other)
  Sender: FDA-Public Use
  Company Number: US-PERRIGO-12US008983

PATIENT
  Age: 34 Year
  Sex: Male
  Weight: 96.15 kg

DRUGS (7)
  1. NAPROXEN SODIUM 220 MG [Suspect]
     Indication: HEADACHE
     Dosage: 440 mg, single, 2000
     Route: 048
     Dates: start: 20121011, end: 20121011
  2. NAPROXEN SODIUM 220 MG [Suspect]
     Indication: PAIN
  3. ATARAX [Suspect]
     Indication: PRURITUS
     Dosage: 25 mg, single
     Route: 048
     Dates: start: 20121011
  4. ATARAX [Suspect]
     Dosage: 25 mg, prn
     Route: 048
     Dates: start: 201209
  5. PREDNISONE [Concomitant]
     Indication: DERMATITIS CONTACT
     Dosage: 80 mg, Unknown
     Route: 048
     Dates: start: 201209
  6. DUONEB [Concomitant]
     Indication: ASTHMA
     Dosage: Unknown, Unknown
     Route: 055
  7. ALBUTEROL [Concomitant]
     Indication: ASTHMA
     Dosage: Unknown, Unknown
     Route: 055

REACTIONS (3)
  - Dyspnoea [Recovered/Resolved]
  - Drug interaction [Unknown]
  - Urticaria [Not Recovered/Not Resolved]
